FAERS Safety Report 14779384 (Version 2)
Quarter: 2018Q2

REPORT INFORMATION
  Report Type: Spontaneous
  Country: GB (occurrence: GB)
  Receive Date: 20180419
  Receipt Date: 20180618
  Transmission Date: 20180711
  Serious: Yes (Hospitalization, Disabling)
  Sender: FDA-Public Use
  Company Number: GB-ROCHE-2110385

PATIENT
  Age: 80 Year
  Sex: Female
  Weight: 80.55 kg

DRUGS (12)
  1. ADCAL-D3 [Concomitant]
     Active Substance: CALCIUM CARBONATE\CHOLECALCIFEROL
     Route: 065
  2. AMLODIPINE [Concomitant]
     Active Substance: AMLODIPINE BESYLATE
     Route: 065
  3. AZITHROMYCIN ANHYDROUS. [Concomitant]
     Active Substance: AZITHROMYCIN ANHYDROUS
     Route: 065
  4. GAVISCON ADVANCE [Concomitant]
     Active Substance: POTASSIUM BICARBONATE\SODIUM ALGINATE
     Route: 065
  5. LANSOPRAZOLE. [Concomitant]
     Active Substance: LANSOPRAZOLE
     Route: 065
  6. RITUXIMAB. [Suspect]
     Active Substance: RITUXIMAB
     Indication: RHEUMATOID ARTHRITIS
     Route: 042
     Dates: start: 20180214, end: 20180214
  7. FOSTAIR [Concomitant]
     Active Substance: BECLOMETHASONE\FORMOTEROL
     Route: 065
  8. PREDNISONE. [Concomitant]
     Active Substance: PREDNISONE
     Route: 065
  9. BISOPROLOL [Concomitant]
     Active Substance: BISOPROLOL
     Route: 065
  10. APIXABAN [Concomitant]
     Active Substance: APIXABAN
     Route: 065
  11. SIMVASTATIN. [Concomitant]
     Active Substance: SIMVASTATIN
     Route: 065
  12. IBANDRONIC ACID. [Concomitant]
     Active Substance: IBANDRONIC ACID
     Route: 065

REACTIONS (7)
  - Left ventricular dysfunction [Recovered/Resolved with Sequelae]
  - Atrial fibrillation [Recovered/Resolved with Sequelae]
  - Dyspnoea [Recovering/Resolving]
  - Oedema [Unknown]
  - Cardiac failure [Recovered/Resolved with Sequelae]
  - Lower respiratory tract infection [Unknown]
  - Lethargy [Unknown]

NARRATIVE: CASE EVENT DATE: 20180217
